FAERS Safety Report 10043110 (Version 2)
Quarter: 2014Q2

REPORT INFORMATION
  Report Type: Spontaneous
  Country: US (occurrence: US)
  Receive Date: 20140328
  Receipt Date: 20140407
  Transmission Date: 20141212
  Serious: No
  Sender: FDA-Public Use
  Company Number: US-BIOGENIDEC-2014BI028794

PATIENT
  Sex: Female

DRUGS (1)
  1. AVONEX [Suspect]
     Indication: MULTIPLE SCLEROSIS
     Route: 030
     Dates: start: 20131230

REACTIONS (4)
  - Injury associated with device [Unknown]
  - Underdose [Unknown]
  - Musculoskeletal disorder [Unknown]
  - Haemorrhage [Recovered/Resolved]
